FAERS Safety Report 12789954 (Version 2)
Quarter: 2016Q4

REPORT INFORMATION
  Report Type: Spontaneous
  Country: IE (occurrence: IE)
  Receive Date: 20160928
  Receipt Date: 20161004
  Transmission Date: 20170207
  Serious: Yes (Other)
  Sender: FDA-Public Use
  Company Number: IE-PFIZER INC-2016375695

PATIENT
  Sex: Male

DRUGS (1)
  1. LYRICA [Suspect]
     Active Substance: PREGABALIN
     Indication: NEUROPATHY PERIPHERAL
     Dosage: 50 MG, 3X/DAY

REACTIONS (6)
  - Generalised erythema [Unknown]
  - Rash generalised [Unknown]
  - Pain [Unknown]
  - Discomfort [Unknown]
  - Drug ineffective [Unknown]
  - Lymphomatoid papulosis [Unknown]
